FAERS Safety Report 4653526-X (Version None)
Quarter: 2005Q2

REPORT INFORMATION
  Report Type: 
  Country: None (occurrence: None)
  Receive Date: 20050503
  Receipt Date: 20050419
  Transmission Date: 20051028
  Serious: Yes (Hospitalization)
  Sender: FDA-Public Use
  Company Number: F01200500609

PATIENT
  Age: 50 Year
  Sex: Male
  Weight: 103.2 kg

DRUGS (5)
  1. OXALIPLATIN - SOLUTION - 130 MG/M2 [Suspect]
     Indication: NON-SMALL CELL LUNG CANCER
     Dosage: 130 MG/M2 Q3W - INTRAVENOUS NOS
     Route: 042
     Dates: start: 20050331, end: 20050331
  2. GEMCITABINE - SOLUTION - 1000 MG/M2 [Suspect]
     Dosage: 1000 MG/M2 Q3W - INTRAVENOUS NOS
     Route: 042
     Dates: start: 20050331, end: 20050331
  3. METOPROLOL SUCCINATE [Concomitant]
  4. IRBESARTAN [Concomitant]
  5. RABEPRAZOLE SODIUM [Concomitant]

REACTIONS (11)
  - ASTHENIA [None]
  - DIALYSIS [None]
  - DYSPEPSIA [None]
  - HEART RATE INCREASED [None]
  - HYDRONEPHROSIS [None]
  - HYDROURETER [None]
  - HYPERKALAEMIA [None]
  - HYPONATRAEMIA [None]
  - MALAISE [None]
  - RENAL FAILURE [None]
  - VOMITING [None]
